FAERS Safety Report 7068146-X (Version None)
Quarter: 2010Q4

REPORT INFORMATION
  Report Type: 
  Country: None (occurrence: None)
  Receive Date: 20101028
  Receipt Date: 20100917
  Transmission Date: 20110411
  Serious: Yes (Death, Life-Threatening, Other)
  Sender: FDA-Public Use
  Company Number: US-BAXTER-2009BH014721

PATIENT
  Age: 57 Year
  Sex: Male
  Weight: 105 kg

DRUGS (34)
  1. HEPARIN SODIUM INJECTION [Suspect]
     Indication: THROMBOSIS PROPHYLAXIS
     Route: 042
     Dates: start: 20070917, end: 20070917
  2. HEPARIN SODIUM INJECTION [Suspect]
     Indication: MYOCARDIAL INFARCTION
     Route: 042
     Dates: start: 20070917, end: 20070917
  3. HEPARIN SODIUM INJECTION [Suspect]
     Route: 042
     Dates: start: 20070917, end: 20070917
  4. HEPARIN SODIUM INJECTION [Suspect]
     Route: 042
     Dates: start: 20070917, end: 20070917
  5. HEPARIN SODIUM INJECTION [Suspect]
     Route: 040
     Dates: start: 20070917, end: 20070917
  6. HEPARIN SODIUM INJECTION [Suspect]
     Route: 040
     Dates: start: 20070917, end: 20070917
  7. HEPARIN SODIUM INJECTION [Suspect]
     Route: 040
     Dates: start: 20070918, end: 20070918
  8. HEPARIN SODIUM INJECTION [Suspect]
     Route: 040
     Dates: start: 20070918, end: 20070918
  9. HEPARIN SODIUM INJECTION [Suspect]
     Route: 040
     Dates: start: 20070922, end: 20070922
  10. HEPARIN SODIUM INJECTION [Suspect]
     Route: 040
     Dates: start: 20070922, end: 20070922
  11. HEPARIN SODIUM INJECTION [Suspect]
     Route: 040
     Dates: start: 20070923, end: 20070923
  12. HEPARIN SODIUM INJECTION [Suspect]
     Route: 040
     Dates: start: 20070923, end: 20070923
  13. HEPARIN SODIUM INJECTION [Suspect]
     Route: 040
     Dates: start: 20070924, end: 20070924
  14. HEPARIN SODIUM INJECTION [Suspect]
     Route: 040
     Dates: start: 20070924, end: 20070924
  15. HEPARIN SODIUM INJECTION [Suspect]
     Route: 040
     Dates: start: 20070925, end: 20070925
  16. HEPARIN SODIUM INJECTION [Suspect]
     Route: 040
     Dates: start: 20070925, end: 20070925
  17. HEPARIN SODIUM INJECTION [Suspect]
     Route: 040
     Dates: start: 20070926, end: 20070926
  18. HEPARIN SODIUM INJECTION [Suspect]
     Route: 040
     Dates: start: 20070926, end: 20070926
  19. HEPARIN SODIUM INJECTION [Suspect]
     Route: 040
     Dates: start: 20070927, end: 20070927
  20. HEPARIN SODIUM INJECTION [Suspect]
     Route: 040
     Dates: start: 20070927, end: 20070927
  21. HEPARIN SODIUM INJECTION [Suspect]
     Route: 040
     Dates: start: 20070928, end: 20070928
  22. HEPARIN SODIUM INJECTION [Suspect]
     Route: 040
     Dates: start: 20070928, end: 20070928
  23. HEPARIN SODIUM INJECTION [Suspect]
     Route: 040
     Dates: start: 20070929, end: 20070929
  24. HEPARIN SODIUM INJECTION [Suspect]
     Route: 040
     Dates: start: 20070929, end: 20070929
  25. HEPARIN SODIUM 5,000 UNITS IN DEXTROSE 5% [Suspect]
     Indication: MYOCARDIAL INFARCTION
     Route: 041
     Dates: start: 20070917, end: 20070929
  26. ACTIVASE [Concomitant]
     Indication: PRODUCT USED FOR UNKNOWN INDICATION
     Route: 042
     Dates: start: 20070917, end: 20070917
  27. ASPIRIN [Concomitant]
     Indication: PRODUCT USED FOR UNKNOWN INDICATION
     Route: 048
     Dates: start: 20070917, end: 20070918
  28. CARVEDILOL [Concomitant]
     Indication: PRODUCT USED FOR UNKNOWN INDICATION
     Route: 048
     Dates: start: 20070916, end: 20070917
  29. VALSARTAN [Concomitant]
     Indication: PRODUCT USED FOR UNKNOWN INDICATION
     Route: 048
     Dates: start: 20070916, end: 20070917
  30. DOCUSATE [Concomitant]
     Indication: PRODUCT USED FOR UNKNOWN INDICATION
     Route: 048
     Dates: start: 20070917, end: 20070918
  31. ATORVASTATIN [Concomitant]
     Indication: PRODUCT USED FOR UNKNOWN INDICATION
     Route: 048
     Dates: start: 20070917, end: 20070918
  32. CLOPIDOGREL [Concomitant]
     Indication: PRODUCT USED FOR UNKNOWN INDICATION
     Route: 048
     Dates: start: 20070917, end: 20070918
  33. NOVOLIN R [Concomitant]
     Indication: PRODUCT USED FOR UNKNOWN INDICATION
     Route: 058
     Dates: start: 20070917, end: 20070918
  34. PANTOPRAZOLE [Concomitant]
     Indication: PRODUCT USED FOR UNKNOWN INDICATION
     Route: 048
     Dates: start: 20070917, end: 20070918

REACTIONS (15)
  - ACIDOSIS [None]
  - ACUTE MYOCARDIAL INFARCTION [None]
  - CARDIAC FAILURE CONGESTIVE [None]
  - CARDIO-RESPIRATORY ARREST [None]
  - CARDIOGENIC SHOCK [None]
  - DYSPNOEA [None]
  - ECCHYMOSIS [None]
  - HYPOTENSION [None]
  - MULTI-ORGAN FAILURE [None]
  - NAUSEA [None]
  - RENAL FAILURE ACUTE [None]
  - RESPIRATORY FAILURE [None]
  - SICK SINUS SYNDROME [None]
  - SLEEP APNOEA SYNDROME [None]
  - VENTRICULAR TACHYCARDIA [None]
